FAERS Safety Report 6895400-4 (Version None)
Quarter: 2010Q3

REPORT INFORMATION
  Report Type: 
  Country: None (occurrence: None)
  Receive Date: 20100802
  Receipt Date: 20100723
  Transmission Date: 20110219
  Serious: Yes (Disabling, Other)
  Sender: FDA-Public Use
  Company Number: US-PFIZER INC-2010042289

PATIENT
  Sex: Female

DRUGS (10)
  1. CHANTIX [Suspect]
     Indication: SMOKING CESSATION THERAPY
     Dosage: STARTER PACK, 1 MG AND MAINTENANCE PACK
     Dates: start: 20081006, end: 20081203
  2. LORTAB [Concomitant]
     Indication: PAIN
     Dosage: UNK
     Dates: start: 19930101, end: 20090101
  3. AMOXICILLIN [Concomitant]
     Indication: INFECTION
     Dosage: UNK
     Dates: start: 20000101, end: 20100101
  4. CLARITIN [Concomitant]
     Indication: HYPERSENSITIVITY
     Dosage: UNK
     Dates: start: 20070101, end: 20100101
  5. FIORICET [Concomitant]
     Indication: PAIN
     Dosage: UNK
     Dates: start: 20050101
  6. PHENERGAN ^AVENTIS PHARMA^ [Concomitant]
     Indication: SOMNOLENCE
     Dosage: UNK
     Dates: start: 20070101, end: 20090101
  7. XANAX [Concomitant]
     Indication: ANXIETY
     Dosage: UNK
     Dates: start: 20060101, end: 20090101
  8. XANAX [Concomitant]
     Indication: PANIC ATTACK
  9. SOMA [Concomitant]
     Indication: PAIN
     Dosage: UNK
     Dates: start: 20050101
  10. VENTOLIN [Concomitant]
     Indication: CHRONIC OBSTRUCTIVE PULMONARY DISEASE
     Dosage: UNK
     Dates: start: 20070101, end: 20090101

REACTIONS (9)
  - AFFECTIVE DISORDER [None]
  - AMNESIA [None]
  - GENERALISED ANXIETY DISORDER [None]
  - INSOMNIA [None]
  - MAJOR DEPRESSION [None]
  - MOOD SWINGS [None]
  - PANIC ATTACK [None]
  - POST-TRAUMATIC STRESS DISORDER [None]
  - SUICIDE ATTEMPT [None]
